FAERS Safety Report 10058685 (Version 2)
Quarter: 2014Q2

REPORT INFORMATION
  Report Type: Report from Study
  Country: DE (occurrence: DE)
  Receive Date: 20140404
  Receipt Date: 20140611
  Transmission Date: 20141212
  Serious: Yes (Other)
  Sender: FDA-Public Use
  Company Number: DE-JNJFOC-20140317932

PATIENT
  Age: 50 Year
  Sex: Male
  Weight: 89 kg

DRUGS (2)
  1. USTEKINUMAB [Suspect]
     Indication: PSORIASIS
     Route: 058
     Dates: start: 20120328
  2. THIAMAZOLE [Concomitant]
     Indication: BASEDOW^S DISEASE
     Route: 048
     Dates: start: 201206

REACTIONS (1)
  - Optic neuritis [Recovered/Resolved]
